FAERS Safety Report 4816811-4 (Version None)
Quarter: 2005Q4

REPORT INFORMATION
  Report Type: 
  Country: None (occurrence: None)
  Receive Date: 20051101
  Receipt Date: 20051021
  Transmission Date: 20060501
  Serious: Yes (Hospitalization)
  Sender: FDA-Public Use
  Company Number: FR-BOEHRINGER INGELHEIM PHARMACEUTICALS, INC.-2005-DE-04421GD

PATIENT
  Sex: Male

DRUGS (3)
  1. NEVIRAPINE [Suspect]
     Indication: HIV INFECTION
     Dates: start: 20000101
  2. LAMIVUDINE [Suspect]
     Indication: HIV INFECTION
     Dates: start: 20000101
  3. STAVUDINE [Suspect]
     Indication: HIV INFECTION
     Dates: start: 20000101

REACTIONS (10)
  - ABDOMINAL PAIN [None]
  - C-REACTIVE PROTEIN DECREASED [None]
  - CHOLECYSTITIS [None]
  - CHOLESTASIS [None]
  - DISSEMINATED TUBERCULOSIS [None]
  - IMMUNOSUPPRESSION [None]
  - JAUNDICE [None]
  - LYMPHADENOPATHY [None]
  - PLEURAL EFFUSION [None]
  - PORTAL VEIN THROMBOSIS [None]
